FAERS Safety Report 7956706-0 (Version None)
Quarter: 2011Q4

REPORT INFORMATION
  Report Type: 
  Country: None (occurrence: None)
  Receive Date: 20111205
  Receipt Date: 20111128
  Transmission Date: 20120403
  Serious: Yes (Other)
  Sender: FDA-Public Use
  Company Number: TR-PFIZER INC-2011290498

PATIENT
  Age: 65 Year
  Sex: Female

DRUGS (1)
  1. LATANOPROST [Suspect]
     Indication: GLAUCOMA
     Dosage: UNK

REACTIONS (3)
  - VISION BLURRED [None]
  - CHORIORETINOPATHY [None]
  - METAMORPHOPSIA [None]
